FAERS Safety Report 10100048 (Version 1)
Quarter: 2014Q2

REPORT INFORMATION
  Report Type: Spontaneous
  Country: US (occurrence: US)
  Receive Date: 20140423
  Receipt Date: 20140423
  Transmission Date: 20141212
  Serious: No
  Sender: FDA-Public Use
  Company Number: US-GILEAD-2013-0074085

PATIENT
  Sex: Female

DRUGS (1)
  1. LETAIRIS [Suspect]
     Indication: PRODUCT USED FOR UNKNOWN INDICATION
     Dosage: 5 MG, QD
     Route: 048
     Dates: start: 20130304, end: 20130408

REACTIONS (5)
  - Peripheral swelling [Unknown]
  - Swelling face [Unknown]
  - Nausea [Unknown]
  - Headache [Unknown]
  - Fluid retention [Unknown]
